FAERS Safety Report 9335273 (Version 1)
Quarter: 2013Q2

REPORT INFORMATION
  Report Type: Spontaneous
  Country: NL (occurrence: NL)
  Receive Date: 20130606
  Receipt Date: 20130606
  Transmission Date: 20140414
  Serious: Yes (Death)
  Sender: FDA-Public Use
  Company Number: NL-PFIZER INC-2013168273

PATIENT
  Age: 93 Year
  Sex: Female

DRUGS (10)
  1. SOMAVERT [Suspect]
     Indication: ACROMEGALY
     Dosage: 10 MG, 1X/DAY
     Dates: start: 20110414, end: 20130602
  2. ACETYLSALICYLIC ACID [Concomitant]
     Dosage: 1 DF, 1X/DAY
     Route: 048
  3. ALISKIREN [Concomitant]
     Dosage: 1 DF, 1X/DAY
     Route: 048
  4. CALCIUMCARBONATE/DIGESTIVES/HERBAL/MAGHYDROXIDE/SODBICARB [Concomitant]
     Dosage: 1 DF, 1X/DAY
     Route: 048
  5. CITALOPRAM [Concomitant]
     Dosage: 10 DF, 1X/DAY
     Route: 048
  6. HALOPERIDOL [Concomitant]
     Dosage: 1 DF, 1X/DAY
     Route: 048
  7. HYDROCORTISON [Concomitant]
     Dosage: 2 DF, 1X/DAY
     Route: 048
  8. IBANDRONIC ACID [Concomitant]
     Dosage: 1 DF, 1X/DAY
     Route: 048
  9. LOSARTAN [Concomitant]
     Dosage: 2 DF, 1X/DAY
     Route: 048
  10. PANTOPRAZOL [Concomitant]
     Dosage: 1 DF, 1X/DAY
     Route: 048

REACTIONS (1)
  - Death [Fatal]
